FAERS Safety Report 6905233-8 (Version None)
Quarter: 2010Q3

REPORT INFORMATION
  Report Type: 
  Country: None (occurrence: None)
  Receive Date: 20100804
  Receipt Date: 20100722
  Transmission Date: 20110219
  Serious: Yes (Life-Threatening, Hospitalization)
  Sender: FDA-Public Use
  Company Number: ES-ELI_LILLY_AND_COMPANY-ES201007006344

PATIENT
  Age: 79 Year
  Sex: Female

DRUGS (6)
  1. OPTRUMA [Suspect]
     Indication: OSTEOPOROSIS
     Dosage: 60 MG, DAILY (1/D)
     Dates: start: 20000101, end: 20100611
  2. LEXATIN [Concomitant]
     Dosage: 1.5 MG, UNK
     Route: 048
     Dates: start: 20000101
  3. FUROSEMIDE [Concomitant]
     Indication: HYPERTENSIVE HEART DISEASE
     Route: 048
  4. SINTROM [Concomitant]
     Route: 048
     Dates: start: 20000101
  5. SPIRIVA [Concomitant]
     Indication: CHRONIC OBSTRUCTIVE PULMONARY DISEASE
     Route: 055
     Dates: start: 20000101
  6. ZALDIAR [Concomitant]
     Dosage: UNK D/F, UNK
     Dates: start: 20000101

REACTIONS (2)
  - INVESTIGATION [None]
  - PULMONARY EMBOLISM [None]
